FAERS Safety Report 8172080-1 (Version None)
Quarter: 2012Q1

REPORT INFORMATION
  Report Type: 
  Country: None (occurrence: None)
  Receive Date: 20120228
  Receipt Date: 20120221
  Transmission Date: 20120608
  Serious: Yes (Hospitalization, Other)
  Sender: FDA-Public Use
  Company Number: US-PFIZER INC-2012032151

PATIENT
  Sex: Female

DRUGS (31)
  1. HEPARIN [Concomitant]
     Dosage: 500 UNITS, EVERY 12 HOURS
     Route: 058
     Dates: start: 20050320
  2. DARVOCET [Concomitant]
     Dosage: UNK
     Dates: start: 20050320
  3. ROBAXIN [Concomitant]
     Dosage: UNK
     Dates: start: 20050320
  4. VANCOMYCIN [Concomitant]
     Dosage: 1500 MG, FOR EVERY 90 HOURS
     Route: 042
     Dates: start: 20050317
  5. LOPRESSOR [Concomitant]
     Indication: TACHYCARDIA
     Dosage: 5 MG, EVERY 6 HOURS
     Route: 042
     Dates: start: 20050323
  6. EPOGEN [Concomitant]
     Dosage: 10,000 UNITS, EVERY FRIDAY
     Route: 058
     Dates: start: 20050320
  7. NEPHROCAPS [Concomitant]
     Dosage: UNK
     Dates: start: 20050320
  8. ATIVAN [Concomitant]
     Dosage: 2 MG, UNK
     Route: 042
     Dates: start: 20050321
  9. ACYCLOVIR [Concomitant]
     Dosage: 400 MG, UNK
     Dates: start: 20050323
  10. CEFEPIME [Concomitant]
     Dosage: 1 G, EVERY 24 HOURS
     Dates: start: 20050319, end: 20050323
  11. ACETAMINOPHEN [Concomitant]
     Dosage: 650 MG, ONE RECTALLY EVERY FOUR HOURS PRN
     Route: 054
     Dates: start: 20050320
  12. PROTONIX [Concomitant]
     Dosage: 40 MG, UNK
     Dates: start: 20050317, end: 20050323
  13. HYDROXYZINE [Concomitant]
     Dosage: UNK
     Dates: start: 20050320
  14. SODIUM PHOSPHATE [Concomitant]
     Dosage: 30 MMOL, UNK
     Dates: start: 20050322
  15. METRONIDAZOLE [Concomitant]
     Dosage: 250 MG, EVERY 6 HOURS
     Dates: start: 20050323, end: 20050323
  16. DEXTROSE [Concomitant]
     Dosage: 50% 250 ML
     Route: 042
     Dates: start: 20050322
  17. SODIUM CHLORIDE [Concomitant]
     Dosage: 0.9% 1000 ML
  18. DILANTIN-125 [Suspect]
     Indication: CONVULSION
     Dosage: UNK
     Dates: start: 20050322
  19. VALSARTAN [Concomitant]
     Dosage: UNK
     Dates: start: 20050320
  20. DOXYCYCLINE [Concomitant]
     Dosage: UNK
     Dates: start: 20050320
  21. FOSPHENYTOIN [Concomitant]
     Dosage: UNK
     Dates: start: 20050321
  22. MAGNESIUM SULFATE [Concomitant]
     Dosage: 3 G, UNK
     Dates: start: 20050320
  23. LIPOSYN [Concomitant]
     Dosage: ML/HOUR
     Dates: start: 20050323
  24. PROMETHAZINE [Concomitant]
     Dosage: UNK
     Dates: start: 20050320
  25. POTASSIUM CHLORIDE [Concomitant]
     Dosage: 10 MEQ, UNK
     Route: 042
     Dates: start: 20050320
  26. TRAMADOL [Concomitant]
     Dosage: 50 MG, ONE EVERY 8 HOURS
     Route: 048
     Dates: start: 20050321
  27. LOPRESSOR [Concomitant]
     Dosage: ONE EVERY 12 HOURS
     Route: 048
     Dates: start: 20050321
  28. CARDIZEM [Concomitant]
     Dosage: 10 MG PER HOUR
     Dates: start: 20050320
  29. CARDIZEM [Concomitant]
     Dosage: 125 MG, UNK
     Dates: start: 20050322
  30. ENULOSE [Concomitant]
     Dosage: UNK
     Dates: start: 20050320
  31. INSULIN HUMAN [Concomitant]
     Dosage: 10 UNITS
     Route: 042
     Dates: start: 20050322

REACTIONS (1)
  - STEVENS-JOHNSON SYNDROME [None]
